FAERS Safety Report 5185763-2 (Version None)
Quarter: 2006Q4

REPORT INFORMATION
  Report Type: 
  Country: None (occurrence: None)
  Receive Date: 20061220
  Receipt Date: 20060303
  Transmission Date: 20070319
  Serious: Yes (Other)
  Sender: FDA-Public Use
  Company Number: JP-BRISTOL-MYERS SQUIBB COMPANY-13307053

PATIENT
  Age: 10 Year
  Sex: Female

DRUGS (7)
  1. IFOMIDE [Suspect]
     Indication: RHABDOMYOSARCOMA
     Route: 042
  2. ENDOXAN [Suspect]
     Indication: RHABDOMYOSARCOMA
     Route: 042
  3. ONCOVIN [Concomitant]
  4. DACTINOMYCIN [Concomitant]
  5. LASTET [Concomitant]
  6. PIRARUBICIN [Concomitant]
  7. ADRIAMYCIN PFS [Concomitant]

REACTIONS (2)
  - LEUKAEMIA [None]
  - PRECURSOR T-LYMPHOBLASTIC LYMPHOMA/LEUKAEMIA [None]
